FAERS Safety Report 10621278 (Version 1)
Quarter: 2014Q4

REPORT INFORMATION
  Report Type: Spontaneous
  Country: DE (occurrence: DE)
  Receive Date: 20141203
  Receipt Date: 20141203
  Transmission Date: 20150529
  Serious: Yes (Other)
  Sender: FDA-Public Use
  Company Number: DE-ASTRAZENECA-2014SE91172

PATIENT
  Sex: Male

DRUGS (9)
  1. ASPIRIN. [Concomitant]
     Active Substance: ASPIRIN
     Route: 048
  2. MOLSIDOMIN [Concomitant]
     Route: 048
  3. AMLODIPIN [Concomitant]
     Active Substance: AMLODIPINE BESYLATE
     Route: 048
  4. RAMIPRIL. [Concomitant]
     Active Substance: RAMIPRIL
     Route: 048
  5. ACTRAPID [Concomitant]
     Active Substance: INSULIN HUMAN
     Dosage: AS REQUIRED
  6. BRILIQUE [Suspect]
     Active Substance: TICAGRELOR
     Route: 048
  7. METOPROLOL [Concomitant]
     Active Substance: METOPROLOL
     Route: 048
  8. SIMVASTATIN. [Concomitant]
     Active Substance: SIMVASTATIN
     Route: 048
  9. INSULIN NOVOMIX [Concomitant]

REACTIONS (4)
  - Cerebral haemorrhage [Unknown]
  - Headache [Unknown]
  - Somnolence [Unknown]
  - Nausea [Unknown]
